FAERS Safety Report 13693239 (Version 1)
Quarter: 2017Q2

REPORT INFORMATION
  Report Type: Spontaneous
  Country: US (occurrence: US)
  Receive Date: 20170626
  Receipt Date: 20170626
  Transmission Date: 20170830
  Serious: Yes (Life-Threatening, Disabling)
  Sender: FDA-Public Use
  Company Number: None

PATIENT
  Age: 45 Year
  Sex: Female
  Weight: 56.25 kg

DRUGS (1)
  1. CLONAZEPAM. [Suspect]
     Active Substance: CLONAZEPAM
     Indication: ANXIETY
     Dates: start: 20160901, end: 20161024

REACTIONS (6)
  - Palpitations [None]
  - Insomnia [None]
  - Suicidal ideation [None]
  - Fear [None]
  - Drug use disorder [None]
  - Depression [None]

NARRATIVE: CASE EVENT DATE: 20161024
